FAERS Safety Report 14938234 (Version 2)
Quarter: 2018Q3

REPORT INFORMATION
  Report Type: Report from Study
  Country: JP (occurrence: JP)
  Receive Date: 20180525
  Receipt Date: 20180718
  Transmission Date: 20181010
  Serious: Yes (Hospitalization)
  Sender: FDA-Public Use
  Company Number: JP-B.I. PHARMACEUTICALS,INC./RIDGEFIELD-2017-NB-002472

PATIENT
  Age: 67 Year
  Sex: Male
  Weight: 49 kg

DRUGS (14)
  1. CILOSTAZOL. [Suspect]
     Active Substance: CILOSTAZOL
     Indication: PRODUCT USED FOR UNKNOWN INDICATION
     Route: 048
  2. PREDONINE [Concomitant]
     Active Substance: PREDNISOLONE
     Route: 065
     Dates: start: 20170706, end: 20170719
  3. BIBF 1120 [Suspect]
     Active Substance: NINTEDANIB
     Route: 065
     Dates: start: 20170805
  4. PREDONINE [Concomitant]
     Active Substance: PREDNISOLONE
     Indication: IDIOPATHIC PULMONARY FIBROSIS
     Route: 065
     Dates: start: 20170625, end: 20170705
  5. PREDONINE [Concomitant]
     Active Substance: PREDNISOLONE
     Route: 065
     Dates: start: 20170815, end: 20170905
  6. SOL?MELCORT [Concomitant]
     Active Substance: METHYLPREDNISOLONE SODIUM SUCCINATE
     Indication: IDIOPATHIC PULMONARY FIBROSIS
     Route: 065
     Dates: start: 20170622, end: 20170624
  7. BIBF 1120 [Suspect]
     Active Substance: NINTEDANIB
     Indication: IDIOPATHIC PULMONARY FIBROSIS
     Route: 065
     Dates: start: 20160602, end: 20170622
  8. SISAAL [Concomitant]
     Active Substance: DEXTROMETHORPHAN HYDROBROMIDE
     Indication: IDIOPATHIC PULMONARY FIBROSIS
     Route: 065
     Dates: start: 20160308
  9. SOL?MELCORT [Concomitant]
     Active Substance: METHYLPREDNISOLONE SODIUM SUCCINATE
     Route: 065
     Dates: start: 20170728, end: 20170731
  10. PREDONINE [Concomitant]
     Active Substance: PREDNISOLONE
     Route: 065
     Dates: start: 20170906
  11. PREDONINE [Concomitant]
     Active Substance: PREDNISOLONE
     Route: 065
     Dates: start: 20170720, end: 20170727
  12. PREDONINE [Concomitant]
     Active Substance: PREDNISOLONE
     Route: 065
     Dates: start: 20170801, end: 20170814
  13. BIBF 1120 [Suspect]
     Active Substance: NINTEDANIB
     Route: 065
     Dates: start: 20170704, end: 20170727
  14. BAYASPIRIN [Suspect]
     Active Substance: ASPIRIN
     Indication: PRODUCT USED FOR UNKNOWN INDICATION
     Route: 048

REACTIONS (5)
  - Haemoptysis [Recovered/Resolved]
  - Diarrhoea [Recovered/Resolved]
  - Idiopathic pulmonary fibrosis [Recovered/Resolved]
  - Idiopathic pulmonary fibrosis [Recovered/Resolved]
  - Diarrhoea [Recovered/Resolved]

NARRATIVE: CASE EVENT DATE: 20161011
